FAERS Safety Report 9144544 (Version 1)
Quarter: 2013Q1

REPORT INFORMATION
  Report Type: Spontaneous
  Country: FR (occurrence: FR)
  Receive Date: 20130306
  Receipt Date: 20130306
  Transmission Date: 20140127
  Serious: Yes (Life-Threatening, Hospitalization)
  Sender: FDA-Public Use
  Company Number: FR-ACTELION-A-CH2013-80085

PATIENT
  Age: 73 Year
  Sex: Female

DRUGS (12)
  1. TRACLEER [Suspect]
     Indication: PULMONARY ARTERIAL HYPERTENSION
     Dosage: 62.5 MG, BID
     Route: 048
     Dates: start: 20130118, end: 20130123
  2. XARELTO [Suspect]
     Dosage: 15 MG, UNK
     Route: 048
     Dates: start: 201301, end: 20130122
  3. TAHOR [Concomitant]
  4. INEXIUM [Concomitant]
  5. PREVISCAN [Concomitant]
  6. TEMERIT [Concomitant]
  7. KENZEN [Concomitant]
  8. ALDACTONE [Concomitant]
  9. LASILIX [Concomitant]
  10. COLCHIMAX [Concomitant]
  11. LEXOMIL [Concomitant]
  12. DAFALGAN [Concomitant]

REACTIONS (7)
  - Anaemia [Recovered/Resolved]
  - Gastrointestinal haemorrhage [Recovered/Resolved]
  - Melaena [Recovered/Resolved]
  - Transfusion [Recovered/Resolved]
  - Blood product transfusion [Recovered/Resolved]
  - Gastrointestinal telangiectasia [Unknown]
  - Haemangioma [Unknown]
